FAERS Safety Report 14569039 (Version 1)
Quarter: 2018Q1

REPORT INFORMATION
  Report Type: Report from Study
  Country: None (occurrence: GR)
  Receive Date: 20180223
  Receipt Date: 20180223
  Transmission Date: 20180509
  Serious: Yes (Hospitalization)
  Sender: FDA-Public Use
  Company Number: GR-ABBVIE-18K-066-2268394-00

PATIENT
  Age: 71 Year
  Sex: Female

DRUGS (8)
  1. DUODOPA [Suspect]
     Active Substance: CARBIDOPA\LEVODOPA
     Indication: PARKINSON^S DISEASE
     Dosage: MORNING DOSE:8.0ML; CONTINUOUS RATE: 2.3ML/H; EXTRA DOSE: 1.0ML??ED1.0
     Route: 050
     Dates: start: 20180214, end: 20180221
  2. ATORSTAT [Concomitant]
     Active Substance: ATORVASTATIN CALCIUM
     Indication: BLOOD CHOLESTEROL ABNORMAL
     Route: 048
  3. DUODOPA [Suspect]
     Active Substance: CARBIDOPA\LEVODOPA
     Dosage: MORNING DOSE:8.0ML; CONTINUOUS RATE: 2.3ML/H; EXTRA DOSE: 1.0ML????ED1.0
     Route: 050
     Dates: start: 20180222
  4. ZANIPRAM [Concomitant]
     Indication: DEPRESSION
     Dosage: 40 MG/ML, 8 DROPS
     Route: 048
  5. CILROTON [Concomitant]
     Indication: PRODUCT USED FOR UNKNOWN INDICATION
     Dates: start: 20180222, end: 20180222
  6. DUODOPA [Suspect]
     Active Substance: CARBIDOPA\LEVODOPA
     Dosage: MORNING DOSE:8.0ML; CONTINUOUS RATE: 2.3ML/H; EXTRA DOSE: 1.0ML????ED1.0
     Route: 050
     Dates: start: 20180221, end: 20180222
  7. JANUMET [Concomitant]
     Active Substance: METFORMIN HYDROCHLORIDE\SITAGLIPTIN PHOSPHATE
     Indication: DIABETES MELLITUS
     Route: 048
  8. BETMIGA [Concomitant]
     Active Substance: MIRABEGRON
     Indication: URINARY INCONTINENCE
     Route: 048

REACTIONS (2)
  - Incorrect route of drug administration [Recovered/Resolved]
  - Intentional medical device removal by patient [Recovered/Resolved]

NARRATIVE: CASE EVENT DATE: 20180220
